FAERS Safety Report 26217044 (Version 1)
Quarter: 2025Q4

REPORT INFORMATION
  Report Type: Spontaneous
  Country: EU (occurrence: EU)
  Receive Date: 20251231
  Receipt Date: 20251231
  Transmission Date: 20260118
  Serious: Yes (Death, Hospitalization)
  Sender: ALEXION PHARMACEUTICALS
  Company Number: None

PATIENT
  Age: 57 Year
  Sex: Male
  Weight: 66.2 kg

DRUGS (10)
  1. DURVALUMAB [Suspect]
     Active Substance: DURVALUMAB
     Indication: Hepatocellular carcinoma
     Dosage: 1500 MILLIGRAM, TOTAL
     Dates: start: 20250807, end: 20250807
  2. DURVALUMAB [Suspect]
     Active Substance: DURVALUMAB
     Indication: Lung adenocarcinoma
     Dosage: 1500 MILLIGRAM, TOTAL
     Dates: start: 20250828, end: 20250828
  3. TREMELIMUMAB [Suspect]
     Active Substance: TREMELIMUMAB
     Indication: Hepatocellular carcinoma
     Dosage: 300 MILLIGRAM, TOTAL
     Dates: start: 20250807, end: 20250807
  4. TREMELIMUMAB [Suspect]
     Active Substance: TREMELIMUMAB
     Indication: Lung adenocarcinoma
  5. CARBOPLATIN [Suspect]
     Active Substance: CARBOPLATIN
     Indication: Hepatocellular carcinoma
     Dosage: AUC: 6
     Dates: start: 20250807, end: 20250807
  6. CARBOPLATIN [Suspect]
     Active Substance: CARBOPLATIN
     Indication: Lung adenocarcinoma
     Dosage: AUC: 6
     Dates: start: 20250828, end: 20250828
  7. PACLITAXEL [Suspect]
     Active Substance: PACLITAXEL
     Indication: Hepatocellular carcinoma
     Dosage: 200 MILLIGRAM/SQ. METER, TOTAL
     Dates: start: 20250807, end: 20250807
  8. PACLITAXEL [Suspect]
     Active Substance: PACLITAXEL
     Indication: Lung adenocarcinoma
     Dosage: 200 MILLIGRAM/SQ. METER, TOTAL
     Dates: start: 20250828, end: 20250828
  9. PREDNISONE [Suspect]
     Active Substance: PREDNISONE
     Indication: Hepatocellular carcinoma
     Dosage: 60 MILLIGRAM, QD
     Dates: start: 20250727
  10. PREDNISONE [Suspect]
     Active Substance: PREDNISONE
     Indication: Lung adenocarcinoma

REACTIONS (1)
  - Lichenoid keratosis [Fatal]

NARRATIVE: CASE EVENT DATE: 20250908
